FAERS Safety Report 21004922 (Version 1)
Quarter: 2022Q2

REPORT INFORMATION
  Report Type: Report from Study
  Country: US (occurrence: US)
  Receive Date: 20220624
  Receipt Date: 20220624
  Transmission Date: 20220721
  Serious: Yes (Other)
  Sender: FDA-Public Use
  Company Number: US-UCBSA-2022034139

PATIENT
  Age: 0 Year
  Sex: Female

DRUGS (27)
  1. CERTOLIZUMAB PEGOL [Suspect]
     Active Substance: CERTOLIZUMAB PEGOL
     Indication: Colitis ulcerative
     Dosage: 200 MILLIGRAM, EV 2 WEEKS(QOW)
     Route: 064
     Dates: start: 20110701, end: 20181116
  2. ADACEL TDAP [Concomitant]
     Active Substance: TETANUS TOXOID, REDUCED DIPHTHERIA TOXOID AND ACELLULAR PERTUSSIS VACCINE ADSORBED, TDAP
     Indication: Product used for unknown indication
     Dosage: 1 DOSAGE FORM, ONE TIME DOSE
     Route: 064
     Dates: start: 20181008, end: 20181008
  3. CETIRIZINE HYDROCHLORIDE [Concomitant]
     Active Substance: CETIRIZINE HYDROCHLORIDE
     Indication: Hypersensitivity
     Dosage: 2 DOSAGE FORM, ONCE DAILY (QD)
     Route: 064
     Dates: start: 20180629, end: 20180629
  4. CETIRIZINE HYDROCHLORIDE [Concomitant]
     Active Substance: CETIRIZINE HYDROCHLORIDE
     Indication: Arthropod sting
     Dosage: 2 DOSAGE FORM, ONCE DAILY (QD)
     Route: 064
     Dates: start: 20180716, end: 20180718
  5. CETIRIZINE HYDROCHLORIDE [Concomitant]
     Active Substance: CETIRIZINE HYDROCHLORIDE
     Dosage: 2 DOSAGE FORM, ONCE DAILY (QD)
     Route: 064
     Dates: start: 20180731, end: 20180731
  6. CETIRIZINE HYDROCHLORIDE [Concomitant]
     Active Substance: CETIRIZINE HYDROCHLORIDE
     Dosage: 2 DOSAGE FORM, ONCE DAILY (QD)
     Route: 064
     Dates: start: 20180820, end: 20180821
  7. CETIRIZINE HYDROCHLORIDE [Concomitant]
     Active Substance: CETIRIZINE HYDROCHLORIDE
     Dosage: 2 DOSAGE FORM, ONCE DAILY (QD)
     Route: 064
     Dates: start: 20180930, end: 20180930
  8. CALCIUM [Concomitant]
     Active Substance: CALCIUM
     Indication: Product used for unknown indication
     Dosage: 1 DOSAGE FORM, ONCE DAILY (QD)
     Route: 064
     Dates: start: 20180405, end: 20181124
  9. CRANBERRY [Concomitant]
     Active Substance: CRANBERRY
     Indication: Product used for unknown indication
     Dosage: 465 MILLIGRAM, ONCE DAILY (QD)
     Route: 064
     Dates: start: 20180222, end: 20180415
  10. DIETARY SUPPLEMENT [Concomitant]
     Active Substance: DIETARY SUPPLEMENT
     Indication: Product used for unknown indication
     Dosage: 2 DOSAGE FORM, ONCE DAILY (QD)
     Route: 064
     Dates: start: 20180915, end: 20181124
  11. FLUARIX NOS [Concomitant]
     Active Substance: INFLUENZA VIRUS VACCINE
     Indication: Product used for unknown indication
     Dosage: 1 DOSAGE FORM, ONE TIME DOSE
     Route: 064
     Dates: start: 20181008, end: 20181008
  12. HUMULIN N [Concomitant]
     Active Substance: INSULIN HUMAN
     Indication: Gestational diabetes
     Dosage: UNK, ONCE DAILY (QD)
     Route: 064
     Dates: start: 20180608, end: 20181122
  13. INSULIN NOS [Concomitant]
     Active Substance: INSULIN NOS
     Indication: Gestational diabetes
     Dosage: 6,8,10 UNITS
     Route: 064
     Dates: start: 20180823, end: 20181122
  14. IRON [Concomitant]
     Active Substance: IRON
     Indication: Product used for unknown indication
     Dosage: 18 MILLIGRAM, ONCE DAILY (QD)
     Route: 064
     Dates: start: 20180901, end: 20181016
  15. IRON [Concomitant]
     Active Substance: IRON
     Dosage: 36 MILLIGRAM, ONCE DAILY (QD)
     Route: 064
     Dates: start: 20181017, end: 20181124
  16. MONISTAT [Concomitant]
     Active Substance: MICONAZOLE NITRATE
     Indication: Fungal infection
     Dosage: UNK, ONCE DAILY (QD)
     Route: 064
     Dates: start: 20180618, end: 20180625
  17. MONISTAT [Concomitant]
     Active Substance: MICONAZOLE NITRATE
     Dosage: UNK, ONCE DAILY (QD)
     Route: 064
     Dates: start: 20180910, end: 20180917
  18. VICKS NYQUIL [Concomitant]
     Active Substance: ACETAMINOPHEN\DEXTROMETHORPHAN HYDROBROMIDE\DOXYLAMINE SUCCINATE
     Indication: Influenza
     Dosage: 1 DOSAGE FORM, ONCE DAILY (QD)
     Route: 064
     Dates: start: 20180307, end: 20180308
  19. ONDANSETRON [Concomitant]
     Active Substance: ONDANSETRON
     Indication: Nausea
     Dosage: 4 MILLIGRAM, ONCE DAILY (QD)
     Route: 064
     Dates: start: 20180720, end: 20180720
  20. MINERALS\VITAMINS [Concomitant]
     Active Substance: MINERALS\VITAMINS
     Indication: Product used for unknown indication
     Dosage: 1 DOSAGE FORM, ONCE DAILY (QD)
     Route: 064
     Dates: start: 20181115, end: 20181124
  21. STOOL SOFTENER (DOCUSATE) [Concomitant]
     Active Substance: DOCUSATE
     Indication: Constipation
     Dosage: 1 DOSAGE FORM, ONCE DAILY (QD)
     Route: 064
     Dates: start: 20181025, end: 20181025
  22. TYLENOL [Concomitant]
     Active Substance: ACETAMINOPHEN
     Indication: Influenza
     Dosage: 2 DOSAGE FORM, 3X/DAY (TID)
     Route: 064
     Dates: start: 20180306, end: 20180306
  23. TYLENOL [Concomitant]
     Active Substance: ACETAMINOPHEN
     Indication: Headache
     Dosage: 4 DOSAGE FORM, 3X/DAY (TID)
     Route: 064
     Dates: start: 20180404, end: 20180404
  24. TYLENOL [Concomitant]
     Active Substance: ACETAMINOPHEN
     Dosage: 1 DOSAGE FORM, ONCE DAILY (QD)
     Route: 064
     Dates: start: 20180701, end: 20180731
  25. VITAMIN B6 [Concomitant]
     Active Substance: PYRIDOXINE HYDROCHLORIDE
     Indication: Nausea
     Dosage: 25 MILLIGRAM, ONCE DAILY (QD)
     Route: 064
     Dates: start: 20180405, end: 20181124
  26. VITAMIN D3 [Concomitant]
     Active Substance: CHOLECALCIFEROL
     Indication: Product used for unknown indication
     Dosage: 1000 INTERNATIONAL UNITS, ONCE DAILY
     Route: 064
     Dates: start: 20180222, end: 20181124
  27. .ALPHA.-TOCOPHEROL [Concomitant]
     Active Substance: .ALPHA.-TOCOPHEROL
     Indication: Product used for unknown indication
     Dosage: 450 MILLIGRAM, ONCE DAILY (QD)
     Route: 064
     Dates: start: 20180222, end: 20181124

REACTIONS (3)
  - Speech disorder [Unknown]
  - Maternal exposure before pregnancy [Unknown]
  - Maternal exposure during pregnancy [Unknown]

NARRATIVE: CASE EVENT DATE: 20180308
